FAERS Safety Report 6529241-4 (Version None)
Quarter: 2010Q1

REPORT INFORMATION
  Report Type: 
  Country: None (occurrence: None)
  Receive Date: 20100107
  Receipt Date: 20091230
  Transmission Date: 20100710
  Serious: Yes (Hospitalization)
  Sender: FDA-Public Use
  Company Number: CL-ROCHE-677198

PATIENT
  Sex: Female
  Weight: 62 kg

DRUGS (2)
  1. CAPECITABINE [Suspect]
     Indication: COLON CANCER
     Route: 048
     Dates: start: 20090101
  2. CHEMOTHERAPY [Suspect]
     Indication: COLON CANCER
     Route: 042
     Dates: start: 20090101

REACTIONS (1)
  - POST PROCEDURAL HAEMORRHAGE [None]
